FAERS Safety Report 20834377 (Version 2)
Quarter: 2022Q2

REPORT INFORMATION
  Report Type: Spontaneous
  Country: CN (occurrence: None)
  Receive Date: 20220516
  Receipt Date: 20220526
  Transmission Date: 20220721
  Serious: Yes (Other)
  Sender: FDA-Public Use
  Company Number: CN-ROCHE-3094940

PATIENT
  Age: 54 Year
  Sex: Female

DRUGS (22)
  1. MABTHERA [Suspect]
     Active Substance: RITUXIMAB
     Indication: Chronic lymphocytic leukaemia
     Dosage: FOR 1 CYCLE
     Route: 065
     Dates: start: 20211101, end: 20220205
  2. MABTHERA [Suspect]
     Active Substance: RITUXIMAB
     Dosage: FOR 1 CYCLE
     Route: 065
     Dates: end: 20220205
  3. GAZYVA [Suspect]
     Active Substance: OBINUTUZUMAB
     Indication: Chronic lymphocytic leukaemia
     Dosage: ON 16 FEB 2022, 23 FEB 2022
     Route: 065
     Dates: start: 20220216
  4. GAZYVA [Suspect]
     Active Substance: OBINUTUZUMAB
     Dosage: ON DAY 0
     Route: 065
     Dates: start: 20220311
  5. GAZYVA [Suspect]
     Active Substance: OBINUTUZUMAB
     Dosage: ON DAY 0
     Route: 065
     Dates: start: 20220505
  6. ZANUBRUTINIB [Concomitant]
     Active Substance: ZANUBRUTINIB
     Indication: Chronic lymphocytic leukaemia
     Dates: start: 20220126, end: 20220205
  7. DEXAMETHASONE [Concomitant]
     Active Substance: DEXAMETHASONE
     Indication: Chronic lymphocytic leukaemia
     Dates: start: 20220126
  8. MOXIFLOXACIN HYDROCHLORIDE [Concomitant]
     Active Substance: MOXIFLOXACIN HYDROCHLORIDE
     Indication: Chronic lymphocytic leukaemia
     Dates: start: 20220126
  9. CEFOPERAZONE SODIUM [Concomitant]
     Active Substance: CEFOPERAZONE SODIUM
     Indication: Chronic lymphocytic leukaemia
     Dates: start: 20220126
  10. SULBACTAM SODIUM [Concomitant]
     Active Substance: SULBACTAM SODIUM
     Indication: Chronic lymphocytic leukaemia
     Dates: start: 20220126
  11. BIAPENEM [Concomitant]
     Active Substance: BIAPENEM
     Indication: Chronic lymphocytic leukaemia
     Dates: start: 20220202
  12. BENDAMUSTINE [Concomitant]
     Active Substance: BENDAMUSTINE
     Indication: Chronic lymphocytic leukaemia
     Dates: start: 20220205
  13. BENDAMUSTINE [Concomitant]
     Active Substance: BENDAMUSTINE
     Dosage: ON DAY 1-2
     Dates: start: 20220311
  14. BENDAMUSTINE [Concomitant]
     Active Substance: BENDAMUSTINE
     Dosage: ON DAY 1-2
     Dates: start: 20220505
  15. CASPOFUNGIN [Concomitant]
     Active Substance: CASPOFUNGIN
     Indication: Chronic lymphocytic leukaemia
     Dates: end: 20220208
  16. CASPOFUNGIN [Concomitant]
     Active Substance: CASPOFUNGIN
     Dates: end: 20220303
  17. IMIPENEM [Concomitant]
     Active Substance: IMIPENEM
     Indication: Chronic lymphocytic leukaemia
     Dates: start: 20220223
  18. CILASTATIN SODIUM [Concomitant]
     Active Substance: CILASTATIN SODIUM
     Indication: Chronic lymphocytic leukaemia
     Dates: start: 20220223
  19. TEICOPLANIN [Concomitant]
     Active Substance: TEICOPLANIN
     Indication: Chronic lymphocytic leukaemia
     Dates: start: 20220228
  20. VENETOCLAX [Concomitant]
     Active Substance: VENETOCLAX
     Indication: Chronic lymphocytic leukaemia
     Dates: start: 20220308
  21. VENETOCLAX [Concomitant]
     Active Substance: VENETOCLAX
     Route: 048
  22. VENETOCLAX [Concomitant]
     Active Substance: VENETOCLAX
     Dates: start: 20220505

REACTIONS (3)
  - Pneumonia [Unknown]
  - Off label use [Unknown]
  - Drug ineffective [Unknown]
